FAERS Safety Report 10366534 (Version 1)
Quarter: 2014Q3

REPORT INFORMATION
  Report Type: Spontaneous
  Country: ES (occurrence: None)
  Receive Date: 20140804
  Receipt Date: 20140804
  Transmission Date: 20150326
  Serious: Yes (Hospitalization)
  Sender: FDA-Public Use
  Company Number: FK201402981

PATIENT
  Age: 36 Year
  Sex: Female

DRUGS (3)
  1. MORPHINE [Suspect]
     Active Substance: MORPHINE
     Indication: PRODUCT USED FOR UNKNOWN INDICATION
     Route: 058
  2. OXYCODONE / NALOXONE (NALOXONE W/OXYCODONE) [Concomitant]
  3. MORPHINE [Suspect]
     Active Substance: MORPHINE
     Indication: PAIN
     Route: 058

REACTIONS (6)
  - Hyperaesthesia [None]
  - Drug withdrawal syndrome [None]
  - Somnolence [None]
  - Constipation [None]
  - Pain [None]
  - Abdominal distension [None]
